FAERS Safety Report 17119967 (Version 1)
Quarter: 2019Q4

REPORT INFORMATION
  Report Type: Spontaneous
  Country: US (occurrence: US)
  Receive Date: 20191113
  Receipt Date: 20191113
  Transmission Date: 20200122
  Serious: Yes (Hospitalization)
  Sender: FDA-Public Use
  Company Number: None

PATIENT
  Sex: Male

DRUGS (1)
  1. LEDIPASVIR/SOFOSBUVIR 90-400 MG ASEGUA THERAPEUTICS [Suspect]
     Active Substance: LEDIPASVIR\SOFOSBUVIR
     Indication: HEPATITIS VIRAL
     Dosage: ?          OTHER DOSE:90MG/400MG;?
     Route: 048
     Dates: start: 20191011

REACTIONS (1)
  - Hospitalisation [None]
